FAERS Safety Report 24116812 (Version 1)
Quarter: 2024Q3

REPORT INFORMATION
  Report Type: Spontaneous
  Country: US (occurrence: US)
  Receive Date: 20240722
  Receipt Date: 20240722
  Transmission Date: 20241016
  Serious: No
  Sender: ASTELLAS
  Company Number: US-ASTELLAS-2023US031485

PATIENT
  Age: 74 Year
  Sex: Female

DRUGS (2)
  1. MYRBETRIQ [Suspect]
     Active Substance: MIRABEGRON
     Indication: Dysuria
     Route: 048
     Dates: start: 20231009
  2. VAGISIL ANTI ITCH ORIGINAL STRENGTH [Concomitant]
     Active Substance: BENZOCAINE\RESORCINOL
     Indication: Dysuria
     Dosage: UNK UNK, UNKNOWN FREQ.
     Route: 065

REACTIONS (2)
  - Off label use [Unknown]
  - Drug effective for unapproved indication [Unknown]

NARRATIVE: CASE EVENT DATE: 20231009
